FAERS Safety Report 9149068 (Version 1)
Quarter: 2013Q1

REPORT INFORMATION
  Report Type: Spontaneous
  Country: US (occurrence: US)
  Receive Date: 20130308
  Receipt Date: 20130308
  Transmission Date: 20140127
  Serious: Yes (Other)
  Sender: FDA-Public Use
  Company Number: US-PFIZER INC-2013078558

PATIENT
  Age: 71 Year
  Sex: Male
  Weight: 103 kg

DRUGS (3)
  1. GLIPIZIDE [Suspect]
     Indication: DIABETES MELLITUS
     Dosage: 10 MG, 2X/DAY
     Route: 048
     Dates: start: 2005, end: 201302
  2. LOSARTAN [Concomitant]
     Indication: HYPERTENSION
     Dosage: 25 MG, UNK
  3. JANUMET [Concomitant]
     Indication: DIABETES MELLITUS
     Dosage: UNK
     Dates: end: 201302

REACTIONS (3)
  - Hyperglycaemia [Unknown]
  - Blood pressure increased [Unknown]
  - Blood glucose increased [Unknown]
